FAERS Safety Report 16978846 (Version 1)
Quarter: 2019Q4

REPORT INFORMATION
  Report Type: Spontaneous
  Country: US (occurrence: US)
  Receive Date: 20191029
  Receipt Date: 20191029
  Transmission Date: 20200122
  Serious: Yes (Disabling, Other)
  Sender: FDA-Public Use
  Company Number: None

PATIENT
  Age: 4 Year
  Sex: Male
  Weight: 17.1 kg

DRUGS (5)
  1. EPIDIOLEX [Concomitant]
     Active Substance: CANNABIDIOL
  2. ONFI [Concomitant]
     Active Substance: CLOBAZAM
  3. TOPAMAX [Concomitant]
     Active Substance: TOPIRAMATE
  4. TOPIRAMATE. [Suspect]
     Active Substance: TOPIRAMATE
     Indication: SEIZURE
  5. VITAMINS [Concomitant]
     Active Substance: VITAMINS

REACTIONS (6)
  - Decreased appetite [None]
  - Coordination abnormal [None]
  - Mood swings [None]
  - Therapy cessation [None]
  - Aggression [None]
  - Visual acuity reduced [None]

NARRATIVE: CASE EVENT DATE: 20170111
